FAERS Safety Report 23195786 (Version 1)
Quarter: 2023Q4

REPORT INFORMATION
  Report Type: Spontaneous
  Country: CN (occurrence: CN)
  Receive Date: 20231117
  Receipt Date: 20231117
  Transmission Date: 20240109
  Serious: Yes (Hospitalization, Other)
  Sender: FDA-Public Use
  Company Number: None

PATIENT
  Age: 43 Year
  Sex: Female
  Weight: 54 kg

DRUGS (4)
  1. CYCLOPHOSPHAMIDE [Suspect]
     Active Substance: CYCLOPHOSPHAMIDE
     Indication: Breast cancer female
     Dosage: 1.1 G, QD, FIFTH CYCLE OF CHEMOTHERAPY, AS PART OF AC-T REGIMEN
     Route: 041
     Dates: start: 20231028, end: 20231028
  2. CYCLOPHOSPHAMIDE [Suspect]
     Active Substance: CYCLOPHOSPHAMIDE
     Indication: Chemotherapy
  3. EPIRUBICIN HYDROCHLORIDE [Suspect]
     Active Substance: EPIRUBICIN HYDROCHLORIDE
     Indication: Breast cancer female
     Dosage: 170 MG, QD, FIFTH CYCLE OF CHEMOTHERAPY, AS PART OF AC-T REGIMEN
     Route: 041
     Dates: start: 20231028, end: 20231028
  4. EPIRUBICIN HYDROCHLORIDE [Suspect]
     Active Substance: EPIRUBICIN HYDROCHLORIDE
     Indication: Chemotherapy

REACTIONS (6)
  - Hyperuricaemia [Recovering/Resolving]
  - Myelosuppression [Recovering/Resolving]
  - White blood cell count decreased [Recovering/Resolving]
  - Hepatic function abnormal [Recovered/Resolved]
  - Nausea [Recovering/Resolving]
  - Vomiting [Recovering/Resolving]

NARRATIVE: CASE EVENT DATE: 20231029
